FAERS Safety Report 24311801 (Version 1)
Quarter: 2024Q3

REPORT INFORMATION
  Report Type: Spontaneous
  Country: CO (occurrence: CO)
  Receive Date: 20240912
  Receipt Date: 20240912
  Transmission Date: 20241016
  Serious: No
  Sender: PFIZER
  Company Number: CO-PFIZER INC-PV202400118042

PATIENT

DRUGS (1)
  1. GENOTROPIN [Suspect]
     Active Substance: SOMATROPIN

REACTIONS (3)
  - Device malfunction [Unknown]
  - Device issue [Unknown]
  - Alopecia [Unknown]
